FAERS Safety Report 20748706 (Version 3)
Quarter: 2022Q4

REPORT INFORMATION
  Report Type: Report from Study
  Country: US (occurrence: None)
  Receive Date: 20220426
  Receipt Date: 20221006
  Transmission Date: 20230113
  Serious: Yes (Hospitalization, Other)
  Sender: FDA-Public Use
  Company Number: US-ABBVIE-22K-163-4370382-00

PATIENT
  Sex: Male

DRUGS (2)
  1. IMBRUVICA [Suspect]
     Active Substance: IBRUTINIB
     Indication: Mantle cell lymphoma
     Route: 048
     Dates: start: 202112
  2. IMBRUVICA [Suspect]
     Active Substance: IBRUTINIB
     Indication: Mantle cell lymphoma
     Route: 048

REACTIONS (6)
  - Pulmonary oedema [Recovering/Resolving]
  - Protein total decreased [Unknown]
  - Fluid retention [Unknown]
  - Chronic obstructive pulmonary disease [Unknown]
  - Lymphoma [Unknown]
  - Haemoglobin abnormal [Unknown]
